FAERS Safety Report 17958976 (Version 3)
Quarter: 2020Q3

REPORT INFORMATION
  Report Type: Spontaneous
  Country: GB (occurrence: GB)
  Receive Date: 20200630
  Receipt Date: 20200805
  Transmission Date: 20201103
  Serious: Yes (Hospitalization, Other)
  Sender: FDA-Public Use
  Company Number: GB-BEH-2020119211

PATIENT
  Age: 2 Year
  Sex: Male
  Weight: 10.9 kg

DRUGS (18)
  1. ALBUREX [Suspect]
     Active Substance: ALBUMIN HUMAN
     Indication: BLOOD ALBUMIN DECREASED
     Dosage: UNK, QIW (MONDAY, WEDNESDAY, FRIDAY AND SATURDAY)
     Route: 042
  2. SIMVASTATIN. [Concomitant]
     Active Substance: SIMVASTATIN
  3. NEORECORMON [Concomitant]
     Active Substance: ERYTHROPOIETIN
  4. ENOXAPARIN SODIUM. [Concomitant]
     Active Substance: ENOXAPARIN SODIUM
  5. POTASSIUM CHLORIDE. [Concomitant]
     Active Substance: POTASSIUM CHLORIDE
  6. PHENOXYMETHYLPENICILLIN [Concomitant]
     Active Substance: PENICILLIN V
  7. CAPTOPRIL. [Concomitant]
     Active Substance: CAPTOPRIL
  8. AMLODIPINE [Concomitant]
     Active Substance: AMLODIPINE BESYLATE
  9. INDOMETACIN [Concomitant]
     Active Substance: INDOMETHACIN
  10. FUROSEMIDE. [Concomitant]
     Active Substance: FUROSEMIDE
  11. ALFACALCIDOL [Concomitant]
     Active Substance: ALFACALCIDOL
  12. SPIRONOLACTONE. [Concomitant]
     Active Substance: SPIRONOLACTONE
  13. CALCIUM [Concomitant]
     Active Substance: CALCIUM
  14. COLECALCIFEROL [Concomitant]
     Active Substance: CHOLECALCIFEROL
  15. OMEPRAZOLE. [Concomitant]
     Active Substance: OMEPRAZOLE
  16. FERROUS FUMARATE [Concomitant]
     Active Substance: FERROUS FUMARATE
  17. ALBUREX [Suspect]
     Active Substance: ALBUMIN HUMAN
     Dosage: UNK, TOT
     Route: 042
     Dates: start: 20200619, end: 20200619
  18. LEVOTHYROXINE SODIUM. [Concomitant]
     Active Substance: LEVOTHYROXINE SODIUM

REACTIONS (6)
  - Body temperature increased [Recovered/Resolved]
  - Suspected product contamination [Recovered/Resolved]
  - Chills [Recovered/Resolved]
  - Sepsis [Recovered/Resolved]
  - Pyrexia [Recovered/Resolved]
  - Infection [Unknown]

NARRATIVE: CASE EVENT DATE: 202006
